FAERS Safety Report 4705880-8 (Version None)
Quarter: 2005Q2

REPORT INFORMATION
  Report Type: 
  Country: None (occurrence: None)
  Receive Date: 20050629
  Receipt Date: 20050414
  Transmission Date: 20051028
  Serious: Yes (Hospitalization)
  Sender: FDA-Public Use
  Company Number: 05P-163-0297449-00

PATIENT
  Age: 51 Year
  Sex: Female
  Weight: 105 kg

DRUGS (14)
  1. HUMIRA [Suspect]
     Indication: POLYMYALGIA RHEUMATICA
     Dosage: 40 MG, 1 IN 2 WK, SUBCUTANEOUS; 40 MG, SUBCUTANEOUS
     Route: 058
     Dates: start: 20030101, end: 20050310
  2. HUMIRA [Suspect]
     Indication: POLYMYALGIA RHEUMATICA
     Dosage: 40 MG, 1 IN 2 WK, SUBCUTANEOUS; 40 MG, SUBCUTANEOUS
     Route: 058
     Dates: start: 20050301
  3. GABAPENTIN [Concomitant]
  4. CRESTOR [Concomitant]
  5. BUMETANIDE [Concomitant]
  6. METOLAZONE [Concomitant]
  7. CYCLOBENZAPRINE HYDROCHLORIDE [Concomitant]
  8. INSULIN [Concomitant]
  9. GLIBENCLAMIDE [Concomitant]
  10. INSULIN HUMAN [Concomitant]
  11. OXYCOCET [Concomitant]
  12. VICODIN [Concomitant]
  13. MULTI-VITAMINS [Concomitant]
  14. POTASSIUM [Concomitant]

REACTIONS (5)
  - DIZZINESS [None]
  - SINUSITIS [None]
  - TOOTH ABSCESS [None]
  - TOOTHACHE [None]
  - VOMITING [None]
